FAERS Safety Report 13107494 (Version 2)
Quarter: 2017Q1

REPORT INFORMATION
  Report Type: Spontaneous
  Country: FR (occurrence: FR)
  Receive Date: 20170112
  Receipt Date: 20170210
  Transmission Date: 20170428
  Serious: Yes (Hospitalization)
  Sender: FDA-Public Use
  Company Number: FR-ROCHE-1878135

PATIENT
  Age: 71 Year
  Sex: Female

DRUGS (1)
  1. LUCENTIS [Suspect]
     Active Substance: RANIBIZUMAB
     Indication: AGE-RELATED MACULAR DEGENERATION
     Dosage: UNK
     Route: 031
     Dates: start: 20161207

REACTIONS (3)
  - Fall [Unknown]
  - Transient ischaemic attack [Recovered/Resolved with Sequelae]
  - Limb discomfort [Unknown]

NARRATIVE: CASE EVENT DATE: 20161211
